FAERS Safety Report 10699782 (Version 2)
Quarter: 2015Q1

REPORT INFORMATION
  Report Type: Spontaneous
  Country: FR (occurrence: FR)
  Receive Date: 20150109
  Receipt Date: 20150109
  Transmission Date: 20150721
  Serious: Yes (Other)
  Sender: FDA-Public Use
  Company Number: FR-AUROBINDO-AUR-APL-2014-12414

PATIENT
  Age: 48 Year
  Sex: Female
  Weight: 73 kg

DRUGS (6)
  1. LORAZEPAM. [Concomitant]
     Active Substance: LORAZEPAM
     Indication: INSOMNIA
     Dosage: 1 DF, DAILY
     Route: 048
     Dates: start: 201208
  2. LORMETAZEPAM [Concomitant]
     Active Substance: LORMETAZEPAM
     Indication: INSOMNIA
     Dosage: 2 MG, DAILY
     Route: 048
     Dates: start: 201208
  3. VENLAFAXINE ARROW 75MG [Suspect]
     Active Substance: VENLAFAXINE HYDROCHLORIDE
     Dosage: 3 DF, DAILY
     Route: 048
     Dates: start: 20141026
  4. FLUOXETINE ARROW [Suspect]
     Active Substance: FLUOXETINE HYDROCHLORIDE
     Indication: DEPRESSION
     Dosage: 3 DF, DAILY
     Route: 048
     Dates: start: 20140724
  5. VENLAFAXINE ARROW 75MG [Suspect]
     Active Substance: VENLAFAXINE HYDROCHLORIDE
     Indication: DEPRESSION
     Dosage: 2 DF, DAILY
     Route: 048
     Dates: start: 20141024, end: 20141025
  6. THERALENE [Concomitant]
     Active Substance: TRIMEPRAZINE
     Indication: INSOMNIA
     Dosage: 4 DF, DAILY
     Route: 065
     Dates: start: 201208

REACTIONS (3)
  - Pain [Recovered/Resolved]
  - Salivary duct obstruction [None]
  - Salivary gland disorder [Recovered/Resolved]

NARRATIVE: CASE EVENT DATE: 20141024
